FAERS Safety Report 8164432 (Version 3)
Quarter: 2019Q4

REPORT INFORMATION
  Report Type: Spontaneous
  Country: GB (occurrence: GB)
  Receive Date: 20110930
  Receipt Date: 20191227
  Transmission Date: 20200122
  Serious: Yes (Death, Other)
  Sender: FDA-Public Use
  Company Number: GB-PFIZER INC-2011232086

PATIENT
  Age: 11 Day
  Sex: Male
  Weight: 3.67 kg

DRUGS (4)
  1. FRUSEMIDE [Concomitant]
     Active Substance: FUROSEMIDE
     Indication: CARDIAC FAILURE
     Dosage: 1 MG, 2X/DAY
  2. FLUCLOXACILLIN [Concomitant]
     Active Substance: FLUCLOXACILLIN
     Dosage: 92 MG, 2X/DAY
  3. PHENYTOIN SODIUM. [Suspect]
     Active Substance: PHENYTOIN SODIUM
     Indication: SEIZURE
     Dosage: 13 MG, 2X/DAY
     Route: 042
     Dates: start: 20110621, end: 20110702
  4. GENTAMICIN. [Concomitant]
     Active Substance: GENTAMICIN
     Dosage: 18.4 MG, UNK

REACTIONS (4)
  - Anticonvulsant drug level above therapeutic [Unknown]
  - Cardiac failure congestive [Fatal]
  - Hypoxic-ischaemic encephalopathy [Fatal]
  - Hypoxia [Unknown]

NARRATIVE: CASE EVENT DATE: 2011
